FAERS Safety Report 22385031 (Version 1)
Quarter: 2023Q2

REPORT INFORMATION
  Report Type: Spontaneous
  Country: US (occurrence: None)
  Receive Date: 20230530
  Receipt Date: 20230530
  Transmission Date: 20230721
  Serious: No
  Sender: FDA-Public Use
  Company Number: None

PATIENT
  Age: 51 Year
  Sex: Male

DRUGS (1)
  1. OZEMPIC [Suspect]
     Active Substance: SEMAGLUTIDE
     Dosage: OTHER ROUTE : NEEDLE AND SYRINGE (NOT SPECIFIED FURTHE;?
     Route: 050

REACTIONS (3)
  - Therapy cessation [None]
  - Feeling abnormal [None]
  - Musculoskeletal discomfort [None]

NARRATIVE: CASE EVENT DATE: 20230512
